FAERS Safety Report 9783444 (Version 2)
Quarter: 2014Q1

REPORT INFORMATION
  Report Type: Spontaneous
  Country: CL (occurrence: CL)
  Receive Date: 20131226
  Receipt Date: 20140117
  Transmission Date: 20141002
  Serious: Yes (Other)
  Sender: FDA-Public Use
  Company Number: CL-PFIZER INC-2013365984

PATIENT
  Age: 80 Year
  Sex: Female

DRUGS (7)
  1. XALATAN [Suspect]
     Indication: GLAUCOMA
     Dosage: 1 DROP, 1X/DAY
     Route: 047
     Dates: start: 201111, end: 201205
  2. LOSARTAN [Concomitant]
  3. NIFEDIPINE [Concomitant]
  4. HYDROCHLOROTHIAZIDE [Concomitant]
  5. ASPIRINA [Concomitant]
  6. GLIBENCLAMIDA [Concomitant]
  7. METFORMIN [Concomitant]
     Dosage: UNK
     Dates: start: 2000

REACTIONS (1)
  - Cataract [Unknown]
